FAERS Safety Report 14441492 (Version 1)
Quarter: 2018Q1

REPORT INFORMATION
  Report Type: Spontaneous
  Country: FR (occurrence: FR)
  Receive Date: 20180125
  Receipt Date: 20180125
  Transmission Date: 20180509
  Serious: Yes (Hospitalization)
  Sender: FDA-Public Use
  Company Number: FR-JNJFOC-20180128145

PATIENT
  Age: 6 Year
  Sex: Male

DRUGS (1)
  1. RISPERDAL [Suspect]
     Active Substance: RISPERIDONE
     Indication: WRONG DRUG ADMINISTERED
     Route: 048
     Dates: start: 20180105, end: 20180105

REACTIONS (4)
  - Agitation [Recovered/Resolved]
  - Tachycardia [Recovered/Resolved]
  - Wrong drug administered [Unknown]
  - Medication error [Unknown]

NARRATIVE: CASE EVENT DATE: 20180105
